FAERS Safety Report 5538372-7 (Version None)
Quarter: 2007Q4

REPORT INFORMATION
  Report Type: 
  Country: None (occurrence: None)
  Receive Date: 20071205
  Receipt Date: 20071122
  Transmission Date: 20080405
  Serious: Yes (Hospitalization)
  Sender: FDA-Public Use
  Company Number: E2020-01901-SPO-FR

PATIENT
  Age: 83 Year
  Sex: Male

DRUGS (8)
  1. ARICEPT [Suspect]
     Indication: DEMENTIA ALZHEIMER'S TYPE
     Dosage: 5 MG, 1 IN 1 D, ORAL; 10 MG, 2 IN 1 D, ORAL
     Route: 048
     Dates: start: 20050101, end: 20070601
  2. ARICEPT [Suspect]
     Indication: DEMENTIA ALZHEIMER'S TYPE
     Dosage: 5 MG, 1 IN 1 D, ORAL; 10 MG, 2 IN 1 D, ORAL
     Route: 048
     Dates: start: 20070721, end: 20070809
  3. PAROXETINE HCL [Concomitant]
  4. NEURONTIN [Concomitant]
  5. LORAZEPAM [Concomitant]
  6. TIAPRIDAL (TIAPRIDE) [Concomitant]
  7. PREDNISONE [Concomitant]
  8. VOLTAREN [Concomitant]

REACTIONS (4)
  - FALL [None]
  - MALAISE [None]
  - PYREXIA [None]
  - TOXIC EPIDERMAL NECROLYSIS [None]
